FAERS Safety Report 7401270-8 (Version None)
Quarter: 2011Q2

REPORT INFORMATION
  Report Type: 
  Country: None (occurrence: None)
  Receive Date: 20110407
  Receipt Date: 20110331
  Transmission Date: 20111010
  Serious: Yes (Hospitalization)
  Sender: FDA-Public Use
  Company Number: US-US-EMD SERONO, INC.-7049901

PATIENT
  Sex: Male
  Weight: 108 kg

DRUGS (3)
  1. UNSPECIFIED ALLERGY MEDICATION [Concomitant]
  2. REBIF [Suspect]
     Indication: MULTIPLE SCLEROSIS
     Dates: start: 20040101
  3. REBIF [Suspect]
     Route: 058
     Dates: start: 20110212

REACTIONS (3)
  - MYALGIA [None]
  - CARDIOMEGALY [None]
  - CARDIAC FAILURE CONGESTIVE [None]
